FAERS Safety Report 9201589 (Version 2)
Quarter: 2013Q2

REPORT INFORMATION
  Report Type: Report from Study
  Country: US (occurrence: US)
  Receive Date: 20130401
  Receipt Date: 20130508
  Transmission Date: 20140414
  Serious: Yes (Hospitalization)
  Sender: FDA-Public Use
  Company Number: US-ACTELION-A-NJ2013-81230

PATIENT
  Age: 5 Year
  Sex: Male

DRUGS (4)
  1. TRACLEER [Suspect]
     Indication: PULMONARY ARTERIAL HYPERTENSION
     Dosage: UNK
     Route: 048
  2. ADCIRCA [Concomitant]
  3. SILDENAFIL [Concomitant]
  4. REMODULIN [Concomitant]

REACTIONS (3)
  - Viral infection [Recovering/Resolving]
  - Pyrexia [Recovering/Resolving]
  - Respiratory tract congestion [Recovering/Resolving]
